FAERS Safety Report 10742267 (Version 1)
Quarter: 2015Q1

REPORT INFORMATION
  Report Type: Spontaneous
  Country: US (occurrence: None)
  Receive Date: 20150123
  Receipt Date: 20150123
  Transmission Date: 20150721
  Serious: Yes (Disabling, Other)
  Sender: FDA-Public Use
  Company Number: None

PATIENT
  Age: 56 Year
  Sex: Male
  Weight: 130.64 kg

DRUGS (1)
  1. ATORVASTATIN [Suspect]
     Active Substance: ATORVASTATIN
     Indication: BLOOD CHOLESTEROL INCREASED
     Dosage: 1 DAILY ONCE DAILY TAKEN BY MOUTH
     Route: 048
     Dates: start: 20141201, end: 20150122

REACTIONS (2)
  - Abasia [None]
  - Tendon disorder [None]

NARRATIVE: CASE EVENT DATE: 20150121
